FAERS Safety Report 17251144 (Version 1)
Quarter: 2020Q1

REPORT INFORMATION
  Report Type: Spontaneous
  Country: FR (occurrence: FR)
  Receive Date: 20200109
  Receipt Date: 20200109
  Transmission Date: 20200409
  Serious: Yes (Death)
  Sender: FDA-Public Use
  Company Number: FR-TEVA-2020-FR-1163641

PATIENT
  Age: 37 Year
  Sex: Male

DRUGS (7)
  1. IBUPROFENE [Concomitant]
     Active Substance: IBUPROFEN
  2. OXAZEPAM. [Concomitant]
     Active Substance: OXAZEPAM
  3. METHADONE [Concomitant]
     Active Substance: METHADONE HYDROCHLORIDE
  4. FENTANYL. [Suspect]
     Active Substance: FENTANYL
     Indication: WITHDRAWAL SYNDROME
     Dosage: 12 MICORGRAM
     Route: 062
     Dates: start: 20191124, end: 20191124
  5. ACTILYSE [Suspect]
     Active Substance: ALTEPLASE
     Indication: ISCHAEMIC STROKE
     Dosage: UNINFORMED
     Route: 042
     Dates: start: 20191124, end: 20191124
  6. DOLIPRANE [Concomitant]
     Active Substance: ACETAMINOPHEN
  7. PIVALONE [Concomitant]

REACTIONS (1)
  - Cerebral haemorrhage [Fatal]

NARRATIVE: CASE EVENT DATE: 20191124
